FAERS Safety Report 4264716-2 (Version None)
Quarter: 2004Q1

REPORT INFORMATION
  Report Type: 
  Country: None (occurrence: None)
  Receive Date: 20040102
  Receipt Date: 20031218
  Transmission Date: 20041129
  Serious: Yes (Other)
  Sender: FDA-Public Use
  Company Number: USA031254752

PATIENT
  Age: 11 Year
  Sex: Female
  Weight: 22 kg

DRUGS (1)
  1. HUMATROPE [Suspect]
     Indication: GROWTH HORMONE DEFICIENCY
     Dosage: 1 MG/DAY
     Dates: start: 20030930, end: 20031127

REACTIONS (8)
  - ANAPHYLACTIC REACTION [None]
  - CONVERSION DISORDER [None]
  - HYPERSENSITIVITY [None]
  - LATEX ALLERGY [None]
  - PSYCHOSOMATIC DISEASE [None]
  - REACTION TO DRUG PRESERVATIVES [None]
  - THROAT TIGHTNESS [None]
  - URTICARIA [None]
